FAERS Safety Report 8310055-X (Version None)
Quarter: 2012Q2

REPORT INFORMATION
  Report Type: 
  Country: None (occurrence: None)
  Receive Date: 20120425
  Receipt Date: 20120417
  Transmission Date: 20120825
  Serious: Yes (Death)
  Sender: FDA-Public Use
  Company Number: CH-ROXANE LABORATORIES, INC.-2012-RO-01081RO

PATIENT
  Age: 37 Year
  Sex: Male
  Weight: 62 kg

DRUGS (6)
  1. MIRTAZAPINE [Suspect]
     Indication: BIPOLAR I DISORDER
  2. OXAZEPAM [Suspect]
  3. HEROIN [Suspect]
  4. COCAINE [Suspect]
  5. BUPRENORPHINE HCL [Suspect]
  6. METHADONE HCL [Suspect]
     Indication: DRUG DEPENDENCE
     Dosage: 50 MG

REACTIONS (1)
  - DIABETIC KETOACIDOSIS [None]
